FAERS Safety Report 10307820 (Version 3)
Quarter: 2015Q1

REPORT INFORMATION
  Report Type: Spontaneous
  Country: US (occurrence: US)
  Receive Date: 20140716
  Receipt Date: 20150206
  Transmission Date: 20150720
  Serious: Yes (Other)
  Sender: FDA-Public Use
  Company Number: US-BAYER-2014-104093

PATIENT
  Age: 32 Year
  Sex: Female
  Weight: 68.93 kg

DRUGS (3)
  1. MIRENA [Suspect]
     Active Substance: LEVONORGESTREL
     Indication: CONTRACEPTION
     Dosage: 20 MCG/24HR, CONT
     Route: 015
     Dates: start: 20140606, end: 20140707
  2. PARACETAMOL [Concomitant]
     Active Substance: ACETAMINOPHEN
  3. MIRENA [Suspect]
     Active Substance: LEVONORGESTREL
     Indication: CONTRACEPTION
     Dosage: 20 MCG/24HR, CONT
     Route: 015

REACTIONS (6)
  - Device dislocation [None]
  - Pain [None]
  - Procedural pain [None]
  - Post procedural discomfort [None]
  - Genital haemorrhage [None]
  - Device difficult to use [None]

NARRATIVE: CASE EVENT DATE: 201406
